FAERS Safety Report 17057197 (Version 1)
Quarter: 2019Q4

REPORT INFORMATION
  Report Type: Spontaneous
  Country: GB (occurrence: GB)
  Receive Date: 20191121
  Receipt Date: 20191121
  Transmission Date: 20200122
  Serious: Yes (Disabling)
  Sender: FDA-Public Use
  Company Number: GB-ACCORD-161664

PATIENT
  Age: 68 Year
  Sex: Female
  Weight: 69.85 kg

DRUGS (6)
  1. OMACOR [Concomitant]
     Active Substance: OMEGA-3-ACID ETHYL ESTERS
  2. BEZAFIBRATE [Concomitant]
     Active Substance: BEZAFIBRATE
  3. CYANOCOBALAMIN/CYANOCOBALAMIN ZINC TANNATE/CYANOCOBALAMIN-TANNIN COMPLEX [Concomitant]
  4. LISINOPRIL. [Concomitant]
     Active Substance: LISINOPRIL
  5. ADCAL-D3 [Concomitant]
     Active Substance: CALCIUM CARBONATE\CHOLECALCIFEROL
  6. AMITRIPTYLINE [Suspect]
     Active Substance: AMITRIPTYLINE
     Indication: PARAESTHESIA
     Route: 048
     Dates: start: 20160402

REACTIONS (2)
  - Abnormal weight gain [Not Recovered/Not Resolved]
  - Depression [Unknown]

NARRATIVE: CASE EVENT DATE: 20160404
